FAERS Safety Report 14599342 (Version 1)
Quarter: 2018Q1

REPORT INFORMATION
  Report Type: Spontaneous
  Country: JP (occurrence: JP)
  Receive Date: 20180305
  Receipt Date: 20180305
  Transmission Date: 20180509
  Serious: Yes (Other)
  Sender: FDA-Public Use
  Company Number: JP-BRISTOL-MYERS SQUIBB COMPANY-BMS-2018-020463

PATIENT
  Age: 70 Year
  Sex: Male

DRUGS (1)
  1. OPDIVO [Suspect]
     Active Substance: NIVOLUMAB
     Indication: NON-SMALL CELL LUNG CANCER
     Dosage: UNK UNK, Q2WK
     Route: 041

REACTIONS (6)
  - Dyspnoea [Unknown]
  - Malignant neoplasm progression [Unknown]
  - Vomiting [Unknown]
  - Tracheal disorder [Unknown]
  - Oesophageal perforation [Unknown]
  - Pneumonia [Unknown]
